FAERS Safety Report 10056328 (Version 3)
Quarter: 2014Q2

REPORT INFORMATION
  Report Type: Spontaneous
  Country: IT (occurrence: IT)
  Receive Date: 20140403
  Receipt Date: 20140627
  Transmission Date: 20141212
  Serious: Yes (Hospitalization)
  Sender: FDA-Public Use
  Company Number: IT-009507513-1404ITA001376

PATIENT
  Age: 82 Year
  Sex: Female

DRUGS (2)
  1. MODURETIC 5/50 MG COMPRESSE [Suspect]
     Indication: HYPERTENSION
     Dosage: 5 MG + 50 MG TABLET, DAILY
     Route: 048
     Dates: start: 20120101, end: 20140313
  2. TIMOPTOL 0.25% COLLIRIO, SOLUZIONE [Suspect]
     Indication: GLAUCOMA
     Dosage: 2 GTT, QD
     Route: 047
     Dates: start: 20120101, end: 20140313

REACTIONS (2)
  - Sinus bradycardia [Recovered/Resolved]
  - Hyponatraemia [Recovered/Resolved]
